FAERS Safety Report 5357339-5 (Version None)
Quarter: 2007Q2

REPORT INFORMATION
  Report Type: 
  Country: None (occurrence: None)
  Receive Date: 20070614
  Receipt Date: 20070608
  Transmission Date: 20071010
  Serious: Yes (Hospitalization)
  Sender: FDA-Public Use
  Company Number: A0654879A

PATIENT
  Sex: Female

DRUGS (2)
  1. PAXIL [Suspect]
     Indication: BIPOLAR DISORDER
     Dosage: 30MG PER DAY
     Route: 048
  2. SEROQUEL [Concomitant]

REACTIONS (2)
  - INTRA-UTERINE DEATH [None]
  - STILLBIRTH [None]
